FAERS Safety Report 6694158-1 (Version None)
Quarter: 2010Q2

REPORT INFORMATION
  Report Type: 
  Country: None (occurrence: None)
  Receive Date: 20100423
  Receipt Date: 20091217
  Transmission Date: 20101027
  Serious: No
  Sender: FDA-Public Use
  Company Number: A0836415A

PATIENT
  Age: 5 Year
  Sex: Female

DRUGS (2)
  1. FLOVENT [Suspect]
     Indication: ASTHMA
     Route: 055
     Dates: start: 20090801
  2. XOPENEX [Suspect]
     Indication: ASTHMA
     Dosage: 90UG TWICE PER DAY
     Route: 055
     Dates: start: 20090801, end: 20090801

REACTIONS (1)
  - TOOTH DISCOLOURATION [None]
